FAERS Safety Report 13028692 (Version 6)
Quarter: 2017Q3

REPORT INFORMATION
  Report Type: Report from Study
  Country: US (occurrence: US)
  Receive Date: 20161214
  Receipt Date: 20170720
  Transmission Date: 20171127
  Serious: Yes (Hospitalization, Other)
  Sender: FDA-Public Use
  Company Number: US-BIOGEN-2015BI041806

PATIENT
  Age: 66 Year
  Sex: Male

DRUGS (2)
  1. TYSABRI [Suspect]
     Active Substance: NATALIZUMAB
     Route: 065
  2. TYSABRI [Suspect]
     Active Substance: NATALIZUMAB
     Indication: CROHN^S DISEASE
     Dosage: INFUSED OVER 1 HOUR
     Route: 042
     Dates: start: 20140404, end: 20161110

REACTIONS (5)
  - Gastrointestinal disorder [Not Recovered/Not Resolved]
  - Oesophageal carcinoma [Recovered/Resolved]
  - Ileostomy [Recovered/Resolved]
  - Crohn^s disease [Not Recovered/Not Resolved]
  - Fistula [Recovered/Resolved]

NARRATIVE: CASE EVENT DATE: 20140817
